FAERS Safety Report 24363356 (Version 2)
Quarter: 2024Q4

REPORT INFORMATION
  Report Type: Report from Study
  Country: US (occurrence: US)
  Receive Date: 20240925
  Receipt Date: 20241009
  Transmission Date: 20250114
  Serious: Yes (Hospitalization)
  Sender: BAYER
  Company Number: US-BAYER-2024A134306

PATIENT
  Age: 57 Year
  Sex: Female

DRUGS (4)
  1. STIVARGA [Suspect]
     Active Substance: REGORAFENIB MONOHYDRATE
     Indication: Colon cancer metastatic
     Dosage: 80 MG, QD
     Route: 048
     Dates: start: 20240719, end: 20240827
  2. PREDNISONE [Concomitant]
     Active Substance: PREDNISONE
     Dosage: UNK
  3. BALSTILIMAB [Concomitant]
     Active Substance: BALSTILIMAB
     Dosage: UNK
  4. BOTENSILIMAB [Concomitant]
     Active Substance: BOTENSILIMAB
     Dosage: UNK

REACTIONS (6)
  - Hallucination [Recovered/Resolved]
  - Confusional state [Recovered/Resolved]
  - Pyrexia [Recovered/Resolved]
  - Dysphonia [Recovered/Resolved]
  - Decreased appetite [Recovering/Resolving]
  - Off label use [None]

NARRATIVE: CASE EVENT DATE: 20240719
